FAERS Safety Report 24560509 (Version 1)
Quarter: 2024Q4

REPORT INFORMATION
  Report Type: Spontaneous
  Country: FR (occurrence: FR)
  Receive Date: 20241029
  Receipt Date: 20241029
  Transmission Date: 20250115
  Serious: Yes (Death, Other)
  Sender: BAXTER
  Company Number: None

PATIENT
  Age: 1 Month
  Sex: Male
  Weight: 1.444 kg

DRUGS (7)
  1. PROPOFOL [Suspect]
     Active Substance: PROPOFOL
     Indication: Extubation
     Dosage: 5 DF (DOSAGE FORM) ONCE TOTAL
     Route: 042
     Dates: start: 20240924, end: 20240925
  2. HYDROCORTISONE [Concomitant]
     Active Substance: HYDROCORTISONE
     Indication: Extubation
     Dosage: 4 DF (DOSAGE FORM) ONCE TOTAL
     Route: 042
     Dates: start: 20240922, end: 20240925
  3. KETAMINE [Concomitant]
     Active Substance: KETAMINE
     Dosage: 1 DF (DOSAGE FORM) ONCE DAILY
     Route: 042
     Dates: start: 20240924, end: 20240925
  4. CLONIDINE HYDROCHLORIDE [Concomitant]
     Active Substance: CLONIDINE HYDROCHLORIDE
     Dosage: 1 DF (DOSAGE FORM) ONCE DAILY
     Route: 042
     Dates: start: 2024, end: 20240925
  5. CAFFEINE [Concomitant]
     Active Substance: CAFFEINE
     Dosage: 1 DF (DOSAGE FORM) ONCE DAILY
     Route: 042
     Dates: start: 2024, end: 20240925
  6. MORPHINE SULFATE [Concomitant]
     Active Substance: MORPHINE SULFATE
     Dosage: 1 DF (DOSAGE FORM) AT AN UNSPECIFIED FREQUENCY
     Route: 042
     Dates: start: 2024, end: 20240925
  7. MIDAZOLAM [Concomitant]
     Active Substance: MIDAZOLAM
     Route: 042
     Dates: start: 2024, end: 20240925

REACTIONS (1)
  - Propofol infusion syndrome [Fatal]

NARRATIVE: CASE EVENT DATE: 20240925
